FAERS Safety Report 9758679 (Version 1)
Quarter: 2013Q4

REPORT INFORMATION
  Report Type: Spontaneous
  Country: US (occurrence: None)
  Receive Date: 20131216
  Receipt Date: 20131216
  Transmission Date: 20140711
  Serious: Yes (Other)
  Sender: FDA-Public Use
  Company Number: RB-52029-2013

PATIENT
  Age: 33 Year
  Sex: Female

DRUGS (3)
  1. SUBOXONE 8 MG [Suspect]
     Indication: DRUG DEPENDENCE
     Dosage: (SUBLINGUAL)
  2. SUBOXONE (8 MG, 2 MG) [Suspect]
     Indication: DRUG DEPENDENCE
     Dosage: (SUBOXONE FILM; VARIOUS DOSES SUBLINGUAL), (SUBOXONE FILM; 1/2 - 1 MG DAILY SUBLINGUAL)
  3. CONTRACEPTIVES [Concomitant]

REACTIONS (5)
  - Menstrual disorder [None]
  - Metrorrhagia [None]
  - Wrong technique in drug usage process [None]
  - Dizziness [None]
  - Premenstrual syndrome [None]
